FAERS Safety Report 11895258 (Version 1)
Quarter: 2016Q1

REPORT INFORMATION
  Report Type: Spontaneous
  Country: US (occurrence: US)
  Receive Date: 20160107
  Receipt Date: 20160107
  Transmission Date: 20160526
  Serious: Yes (Hospitalization)
  Sender: FDA-Public Use
  Company Number: US-AMNEAL PHARMACEUTICALS-2016AMN00009

PATIENT
  Age: 73 Year
  Sex: Male
  Weight: 88.44 kg

DRUGS (3)
  1. TRAMADOL (GREENSTONE) [Suspect]
     Active Substance: TRAMADOL
     Indication: RESTLESS LEGS SYNDROME
  2. SPIRIVA [Concomitant]
     Active Substance: TIOTROPIUM BROMIDE MONOHYDRATE
  3. SPIRONOLACTONE. [Suspect]
     Active Substance: SPIRONOLACTONE
     Indication: HYPERTENSION
     Dosage: 25 MG, 1X/DAY, IN THE MORNING
     Route: 048
     Dates: start: 201412

REACTIONS (3)
  - Rales [Unknown]
  - Fatigue [Unknown]
  - Dyspnoea [Unknown]

NARRATIVE: CASE EVENT DATE: 201506
